FAERS Safety Report 7968182-2 (Version None)
Quarter: 2011Q4

REPORT INFORMATION
  Report Type: 
  Country: None (occurrence: None)
  Receive Date: 20111209
  Receipt Date: 20111205
  Transmission Date: 20120403
  Serious: Yes (Other)
  Sender: FDA-Public Use
  Company Number: PHEH2011US00731

PATIENT
  Sex: Female

DRUGS (2)
  1. GILENYA [Suspect]
     Indication: RELAPSING-REMITTING MULTIPLE SCLEROSIS
     Dosage: 0.5 MG, QD
     Route: 048
     Dates: start: 20110127
  2. GILENYA [Suspect]
     Indication: MULTIPLE SCLEROSIS

REACTIONS (4)
  - MACULAR OEDEMA [None]
  - MACULAR SCAR [None]
  - RETINAL OEDEMA [None]
  - CHOROIDITIS [None]
